FAERS Safety Report 19783106 (Version 1)
Quarter: 2021Q3

REPORT INFORMATION
  Report Type: Spontaneous
  Country: NL (occurrence: NL)
  Receive Date: 20210903
  Receipt Date: 20210903
  Transmission Date: 20211014
  Serious: Yes (Other)
  Sender: FDA-Public Use
  Company Number: NL-CELLTRION INC.-2021NL011712

PATIENT

DRUGS (3)
  1. HYDROXYCHLOROQUINE [Suspect]
     Active Substance: HYDROXYCHLOROQUINE
     Indication: ANTIPHOSPHOLIPID SYNDROME
     Dosage: 400 MG, QD
  2. RITUXIMAB. [Suspect]
     Active Substance: RITUXIMAB
     Indication: ANTIPHOSPHOLIPID SYNDROME
     Dosage: INTERVAL: EVERY 12 HOURS; 1000 MG, BID (ONCE WEEKLY)
  3. LOW MOLECULAR WEIGHT HEPARIN [Concomitant]
     Active Substance: UNSPECIFIED INGREDIENT
     Indication: ANTIPHOSPHOLIPID SYNDROME
     Dosage: UNK

REACTIONS (5)
  - Disease progression [Recovered/Resolved]
  - Treatment failure [Recovered/Resolved]
  - Skin lesion [Recovered/Resolved]
  - Antiphospholipid syndrome [Recovered/Resolved]
  - Off label use [Unknown]
